FAERS Safety Report 11986412 (Version 1)
Quarter: 2016Q1

REPORT INFORMATION
  Report Type: Spontaneous
  Country: US (occurrence: US)
  Receive Date: 20160202
  Receipt Date: 20160202
  Transmission Date: 20160526
  Serious: Yes (Hospitalization)
  Sender: FDA-Public Use
  Company Number: US-UCBSA-2014021496

PATIENT
  Age: 64 Year
  Sex: Female

DRUGS (8)
  1. LAMICTAL [Suspect]
     Active Substance: LAMOTRIGINE
     Indication: EPILEPSY
     Dosage: 400 MG, ONCE DAILY (QD) (IN THE MORNING)
     Route: 048
  2. LAMICTAL [Suspect]
     Active Substance: LAMOTRIGINE
     Indication: EPILEPSY
     Dosage: 50 MG, ONCE DAILY (QD) (EACH MORNING), VARIABLE DOSING
     Route: 048
     Dates: end: 20140605
  3. ZONEGRAN [Suspect]
     Active Substance: ZONISAMIDE
     Indication: PRODUCT USED FOR UNKNOWN INDICATION
     Dosage: UNK, 2X/DAY (BID), 200 MG EVERY MORNING AND 300 MG EVERY EVENING
  4. DEPAKOTE [Suspect]
     Active Substance: DIVALPROEX SODIUM
     Indication: PRODUCT USED FOR UNKNOWN INDICATION
     Dosage: UNKNOWN DOSING
  5. KEPPRA [Suspect]
     Active Substance: LEVETIRACETAM
     Indication: PRODUCT USED FOR UNKNOWN INDICATION
     Dosage: UNK, 2X/DAY (BID); 1500 MG EVERY MORNING 2000 MG EVERY EVENING
  6. TEGRETOL [Suspect]
     Active Substance: CARBAMAZEPINE
     Indication: PRODUCT USED FOR UNKNOWN INDICATION
     Dosage: UNKNOWN DOSING
  7. LAMOTRIGINE. [Suspect]
     Active Substance: LAMOTRIGINE
     Indication: EPILEPSY
     Dosage: UNKNOWN DOSING
  8. VALIUM [Concomitant]
     Active Substance: DIAZEPAM
     Indication: SLEEP DISORDER

REACTIONS (11)
  - Tremor [Unknown]
  - Off label use [Unknown]
  - Dehydration [Unknown]
  - Sleep disorder [Unknown]
  - Accidental overdose [Unknown]
  - Overdose [Unknown]
  - Seizure [Not Recovered/Not Resolved]
  - Increased appetite [Unknown]
  - Decreased appetite [Unknown]
  - Myoclonus [Not Recovered/Not Resolved]
  - Weight decreased [Unknown]
